FAERS Safety Report 23015871 (Version 1)
Quarter: 2023Q4

REPORT INFORMATION
  Report Type: Spontaneous
  Country: US (occurrence: US)
  Receive Date: 20231002
  Receipt Date: 20231002
  Transmission Date: 20240109
  Serious: No
  Sender: FDA-Public Use
  Company Number: US-MYLANLABS-2023M1098973

PATIENT
  Sex: Male
  Weight: 79.38 kg

DRUGS (2)
  1. CLONIDINE TRANSDERMAL SYSTEM [Suspect]
     Active Substance: CLONIDINE
     Indication: Nausea
     Dosage: 0.1 MILLIGRAM, QD (CHANGED WEEKLY)
     Route: 062
     Dates: start: 20230801
  2. CLONIDINE TRANSDERMAL SYSTEM [Suspect]
     Active Substance: CLONIDINE
     Indication: Blood pressure abnormal

REACTIONS (3)
  - Wrong technique in product usage process [Unknown]
  - Product dose omission issue [Unknown]
  - Product adhesion issue [Unknown]
